FAERS Safety Report 21151458 (Version 1)
Quarter: 2022Q3

REPORT INFORMATION
  Report Type: Spontaneous
  Country: ZA (occurrence: ZA)
  Receive Date: 20220730
  Receipt Date: 20220730
  Transmission Date: 20221026
  Serious: No
  Sender: FDA-Public Use
  Company Number: ZA-LUPIN PHARMACEUTICALS INC.-2022-09751

PATIENT
  Age: 86 Year
  Sex: Male

DRUGS (5)
  1. AMLODIPINE BESYLATE [Suspect]
     Active Substance: AMLODIPINE BESYLATE
     Indication: Hypertension
     Dosage: 10 MG
     Route: 048
     Dates: start: 202205
  2. AMIODARONE [Concomitant]
     Active Substance: AMIODARONE
     Indication: Hypertension
     Dosage: 200 MG
     Route: 048
  3. PERINDOPRIL ERBUMINE [Concomitant]
     Active Substance: PERINDOPRIL ERBUMINE
     Indication: Hypertension
     Dosage: UNK 5/1.25 MG
     Route: 048
  4. Pantocid [Concomitant]
     Indication: Ulcer
     Dosage: 40 MG
     Route: 048
  5. BISOPROLOL [Concomitant]
     Active Substance: BISOPROLOL
     Indication: Hypertension
     Dosage: 2.5 MG
     Route: 048
     Dates: start: 202205

REACTIONS (1)
  - Joint swelling [Unknown]
